FAERS Safety Report 10470967 (Version 1)
Quarter: 2014Q3

REPORT INFORMATION
  Report Type: Spontaneous
  Country: GB (occurrence: GB)
  Receive Date: 20140923
  Receipt Date: 20140923
  Transmission Date: 20150326
  Serious: Yes (Other)
  Sender: FDA-Public Use
  Company Number: PHFR2014GB006379

PATIENT
  Sex: Female

DRUGS (1)
  1. NEORAL [Suspect]
     Active Substance: CYCLOSPORINE
     Indication: COLITIS ULCERATIVE
     Dosage: 175 MG, BID
     Route: 042
     Dates: start: 201405

REACTIONS (5)
  - Influenza [Unknown]
  - Diarrhoea haemorrhagic [Unknown]
  - Back pain [Unknown]
  - Colitis ulcerative [Unknown]
  - Vomiting [Unknown]
